FAERS Safety Report 4457178-3 (Version None)
Quarter: 2004Q3

REPORT INFORMATION
  Report Type: 
  Country: None (occurrence: None)
  Receive Date: 20040921
  Receipt Date: 20040908
  Transmission Date: 20050211
  Serious: Yes (Other)
  Sender: FDA-Public Use
  Company Number: 2004232388US

PATIENT
  Age: 48 Year
  Sex: Female

DRUGS (6)
  1. GAMMONATIV (IMMUNOGLOBULIN HUMAN NORMAL, ALBUMIN NORMAL HUMAN SERUM) P [Suspect]
     Dosage: SEE IMAGE
     Route: 042
  2. ATGAM [Suspect]
     Dosage: 1.5 , IV
     Route: 042
  3. MANNITOL [Concomitant]
  4. STEROID TAPER [Concomitant]
  5. MYCOPHENOLATE MOFETIL (MYCOPHENOLATE MFOETIL) [Concomitant]
  6. METHYLPREDNISOLONE [Concomitant]

REACTIONS (3)
  - DRUG EFFECT DECREASED [None]
  - DRUG INTERACTION [None]
  - RENAL INJURY [None]
